FAERS Safety Report 24563695 (Version 1)
Quarter: 2024Q4

REPORT INFORMATION
  Report Type: Spontaneous
  Country: US (occurrence: US)
  Receive Date: 20241030
  Receipt Date: 20241030
  Transmission Date: 20250114
  Serious: No
  Sender: TEVA
  Company Number: US-TEVA-VS-3255474

PATIENT
  Age: 84 Year
  Sex: Female

DRUGS (2)
  1. ROSUVASTATIN [Suspect]
     Active Substance: ROSUVASTATIN
     Indication: Product used for unknown indication
     Route: 065
  2. DUPIXENT [Suspect]
     Active Substance: DUPILUMAB
     Indication: Dermatitis atopic
     Dosage: FORM STRENGTH: 300 MG/2 ML, QOW
     Route: 058

REACTIONS (9)
  - Rash macular [Unknown]
  - Pain [Recovering/Resolving]
  - Insomnia [Unknown]
  - Scab [Unknown]
  - Injection site pain [Recovered/Resolved]
  - Dermatitis infected [Unknown]
  - Skin exfoliation [Unknown]
  - Pruritus [Unknown]
  - Wrong technique in product usage process [Unknown]
